FAERS Safety Report 24980950 (Version 1)
Quarter: 2025Q1

REPORT INFORMATION
  Report Type: Spontaneous
  Country: US (occurrence: None)
  Receive Date: 20250215
  Receipt Date: 20250215
  Transmission Date: 20250408
  Serious: Yes (Other)
  Sender: FDA-CTU
  Company Number: None

PATIENT
  Age: 64 Year
  Sex: Female
  Weight: 81 kg

DRUGS (9)
  1. MOUNJARO [Suspect]
     Active Substance: TIRZEPATIDE
     Indication: Glycosylated haemoglobin increased
     Route: 058
  2. VARENICLINE [Concomitant]
     Active Substance: VARENICLINE
  3. GABAPENTIN [Concomitant]
     Active Substance: GABAPENTIN
  4. ROSUVASTATIN [Concomitant]
     Active Substance: ROSUVASTATIN
  5. XARELTO [Concomitant]
     Active Substance: RIVAROXABAN
  6. CLOPIDOGREL [Concomitant]
     Active Substance: CLOPIDOGREL BISULFATE
  7. IBUPROFEN [Concomitant]
     Active Substance: IBUPROFEN
  8. BENADRYL [Concomitant]
     Active Substance: DIPHENHYDRAMINE HYDROCHLORIDE
  9. BIOTIN [Concomitant]
     Active Substance: BIOTIN

REACTIONS (5)
  - Eructation [None]
  - Thermal burn [None]
  - Face injury [None]
  - Thermal burn [None]
  - Lip blister [None]

NARRATIVE: CASE EVENT DATE: 20250214
